FAERS Safety Report 18355201 (Version 1)
Quarter: 2020Q4

REPORT INFORMATION
  Report Type: Spontaneous
  Country: NL (occurrence: FR)
  Receive Date: 20201007
  Receipt Date: 20201007
  Transmission Date: 20210114
  Serious: Yes (Hospitalization)
  Sender: FDA-Public Use
  Company Number: FR-FRESENIUS KABI-FK202010171

PATIENT
  Age: 52 Year
  Sex: Female

DRUGS (5)
  1. PROPOFOL (MANUFACTURER UNKNOWN) [Suspect]
     Active Substance: PROPOFOL
     Indication: INDUCTION OF ANAESTHESIA
     Dosage: 100 MG AT ANAESTHESIA INDUCTION
     Route: 042
     Dates: start: 20200909, end: 20200909
  2. ROCURONIUM BROMIDE. [Suspect]
     Active Substance: ROCURONIUM BROMIDE
     Indication: INDUCTION OF ANAESTHESIA
     Dosage: 80MG AT ANAESTHESIA INDUCTION
     Route: 042
     Dates: start: 20200909, end: 20200909
  3. SUFENTANIL CITRATE. [Suspect]
     Active Substance: SUFENTANIL CITRATE
     Indication: INDUCTION OF ANAESTHESIA
     Dosage: 20MG AT ANAESTHESIA INDUCTION
     Route: 042
     Dates: start: 20200909, end: 20200909
  4. DEXAMETHASONE. [Suspect]
     Active Substance: DEXAMETHASONE
     Indication: INDUCTION OF ANAESTHESIA
     Dosage: 8MG AT ANAESTHESIA INDUCTION
     Route: 042
     Dates: start: 20200909, end: 20200909
  5. KETAMINE HYDROCHLORIDE. [Suspect]
     Active Substance: KETAMINE HYDROCHLORIDE
     Indication: INDUCTION OF ANAESTHESIA
     Dosage: 20 MG AT ANAESTHESIA INDUCTION
     Route: 042
     Dates: start: 20200909, end: 20200909

REACTIONS (1)
  - Anaphylactic shock [Recovered/Resolved]

NARRATIVE: CASE EVENT DATE: 20200909
